FAERS Safety Report 18796620 (Version 2)
Quarter: 2021Q1

REPORT INFORMATION
  Report Type: Spontaneous
  Country: TW (occurrence: TW)
  Receive Date: 20210128
  Receipt Date: 20210203
  Transmission Date: 20210419
  Serious: Yes (Other)
  Sender: FDA-Public Use
  Company Number: NVSC2021TW013636

PATIENT
  Sex: Female

DRUGS (6)
  1. TACROLIMUS. [Concomitant]
     Active Substance: TACROLIMUS
     Indication: PRODUCT USED FOR UNKNOWN INDICATION
     Dosage: UNK
     Route: 065
  2. GANCICLOVIR. [Concomitant]
     Active Substance: GANCICLOVIR
     Indication: PRODUCT USED FOR UNKNOWN INDICATION
     Dosage: UNK
     Route: 065
  3. MYCOPHENOLATE MOFETIL. [Suspect]
     Active Substance: MYCOPHENOLATE MOFETIL
     Indication: PRODUCT USED FOR UNKNOWN INDICATION
     Dosage: UNK
     Route: 065
  4. METHYLPREDNISOLONE. [Concomitant]
     Active Substance: METHYLPREDNISOLONE
     Indication: PRODUCT USED FOR UNKNOWN INDICATION
     Dosage: UNK
     Route: 065
  5. CYCLOSPORINE. [Suspect]
     Active Substance: CYCLOSPORINE
     Indication: PRODUCT USED FOR UNKNOWN INDICATION
     Dosage: UNK
     Route: 065
  6. LENALIDOMIDE [Concomitant]
     Active Substance: LENALIDOMIDE
     Indication: PRODUCT USED FOR UNKNOWN INDICATION
     Dosage: UNK
     Route: 065

REACTIONS (29)
  - Influenza [Unknown]
  - Acute graft versus host disease in skin [Unknown]
  - Abdominal pain lower [Unknown]
  - Diarrhoea [Unknown]
  - Red blood cells urine [Unknown]
  - Pain in extremity [Unknown]
  - Arthralgia [Unknown]
  - Malaise [Unknown]
  - Blood bilirubin increased [Unknown]
  - Cough [Unknown]
  - Erythema [Unknown]
  - Scleroderma [Unknown]
  - Influenza like illness [Unknown]
  - Pruritus [Unknown]
  - Hypoaesthesia [Unknown]
  - Pain [Unknown]
  - Pneumonia [Unknown]
  - Oropharyngeal pain [Unknown]
  - Weight decreased [Unknown]
  - Pityriasis [Unknown]
  - Swelling [Unknown]
  - Cytomegalovirus infection [Unknown]
  - Pyrexia [Unknown]
  - Rhinorrhoea [Unknown]
  - Back pain [Unknown]
  - Cholelithiasis [Unknown]
  - Dyspnoea [Unknown]
  - Patella fracture [Unknown]
  - Upper respiratory tract infection [Unknown]

NARRATIVE: CASE EVENT DATE: 200910
